FAERS Safety Report 5157367-9 (Version None)
Quarter: 2006Q4

REPORT INFORMATION
  Report Type: 
  Country: None (occurrence: None)
  Receive Date: 20061127
  Receipt Date: 20061122
  Transmission Date: 20070319
  Serious: Yes (Other)
  Sender: FDA-Public Use
  Company Number: DE-AVENTIS-200613422DE

PATIENT
  Age: 44 Year
  Sex: Male

DRUGS (9)
  1. CLEXANE [Suspect]
     Dates: end: 20061101
  2. PLAVIX [Concomitant]
     Dosage: DOSE: NOT REPORTED
     Route: 048
     Dates: end: 20061024
  3. ASPIRIN [Concomitant]
     Route: 048
     Dates: end: 20061024
  4. SORTIS                             /01326101/ [Concomitant]
  5. EZETROL [Concomitant]
  6. CONCOR COR [Concomitant]
  7. BENALAPRIL [Concomitant]
  8. ORELOX [Concomitant]
     Dates: start: 20061119
  9. NIASPAN [Concomitant]

REACTIONS (3)
  - HEMIANOPIA [None]
  - VASCULITIS [None]
  - VISUAL FIELD DEFECT [None]
